FAERS Safety Report 11634774 (Version 3)
Quarter: 2015Q4

REPORT INFORMATION
  Report Type: Spontaneous
  Country: US (occurrence: US)
  Receive Date: 20151015
  Receipt Date: 20151016
  Transmission Date: 20160314
  Serious: No
  Sender: FDA-Public Use
  Company Number: US-GREER LABORATORIES, INC.-1043014

PATIENT
  Age: 62 Year
  Sex: Male
  Weight: 124.09 kg

DRUGS (13)
  1. BOX ELDER [Suspect]
     Active Substance: ACER NEGUNDO POLLEN
     Route: 058
  2. EASTERN COTTONWOOD [Suspect]
     Active Substance: POPULUS DELTOIDES POLLEN
     Route: 058
  3. POLLENS - TREES, GS BIRCH MIX [Suspect]
     Active Substance: BETULA LENTA POLLEN\BETULA NIGRA POLLEN\BETULA POPULIFOLIA POLLEN
     Indication: MULTIPLE ALLERGIES
     Route: 058
  4. POLLENS - TREES, ASH, WHITE FRAXINUS AMERICANA [Suspect]
     Active Substance: FRAXINUS AMERICANA POLLEN
     Route: 058
  5. AMERICAN ELM [Suspect]
     Active Substance: ULMUS AMERICANA POLLEN
     Route: 058
  6. POLLENS - TREES, GS HICKORY-PECAN MIX [Suspect]
     Active Substance: CARYA ILLINOINENSIS POLLEN\CARYA OVATA POLLEN
     Route: 058
  7. RED OAK [Suspect]
     Active Substance: QUERCUS RUBRA POLLEN
     Route: 058
  8. HACKBERRY [Suspect]
     Active Substance: CELTIS OCCIDENTALIS POLLEN
     Route: 058
  9. EASTERN WHITE PINE [Suspect]
     Active Substance: PINUS STROBUS POLLEN
     Route: 058
  10. MOUNTAIN CEDAR [Suspect]
     Active Substance: JUNIPERUS ASHEI POLLEN
     Route: 058
  11. EASTERN SYCAMORE POLLEN [Suspect]
     Active Substance: PLATANUS OCCIDENTALIS POLLEN
     Route: 058
  12. POLLENS - TREES, GS BIRCH MIX [Suspect]
     Active Substance: BETULA LENTA POLLEN\BETULA NIGRA POLLEN\BETULA POPULIFOLIA POLLEN
     Route: 058
  13. BLACK WALNUT POLLEN [Suspect]
     Active Substance: JUGLANS NIGRA POLLEN
     Route: 058

REACTIONS (7)
  - Dyspnoea [Recovered/Resolved]
  - Tremor [Recovered/Resolved]
  - Tachycardia [Recovered/Resolved]
  - Chest discomfort [Recovered/Resolved]
  - Dyspnoea [Recovered/Resolved]
  - Hyperhidrosis [Recovered/Resolved]
  - Oxygen saturation decreased [Recovered/Resolved]

NARRATIVE: CASE EVENT DATE: 20150810
